FAERS Safety Report 16976731 (Version 1)
Quarter: 2019Q4

REPORT INFORMATION
  Report Type: Spontaneous
  Country: IE (occurrence: IE)
  Receive Date: 20191030
  Receipt Date: 20191030
  Transmission Date: 20200122
  Serious: Yes (Life-Threatening)
  Sender: FDA-Public Use
  Company Number: IE-VALIDUS PHARMACEUTICALS LLC-IE-2019VAL000641

PATIENT

DRUGS (1)
  1. METOPROLOL TARTRATE. [Suspect]
     Active Substance: METOPROLOL TARTRATE
     Indication: ATRIAL FIBRILLATION
     Dosage: 75 MG, QD (AS REQUIRED)
     Route: 048

REACTIONS (2)
  - Hypotension [Unknown]
  - Exposure during pregnancy [Unknown]
